FAERS Safety Report 21541110 (Version 1)
Quarter: 2022Q4

REPORT INFORMATION
  Report Type: Report from Study
  Country: DE (occurrence: DE)
  Receive Date: 20221102
  Receipt Date: 20221102
  Transmission Date: 20230113
  Serious: Yes (Other)
  Sender: FDA-Public Use
  Company Number: DE-MYLANLABS-2022M1118760

PATIENT
  Age: 53 Year
  Sex: Male

DRUGS (18)
  1. FLUOROURACIL [Suspect]
     Active Substance: FLUOROURACIL
     Indication: Gastric cancer
     Dosage: UNK UNK, CYCLE
     Route: 065
  2. FLUOROURACIL [Suspect]
     Active Substance: FLUOROURACIL
     Indication: Epstein-Barr virus infection
     Dosage: UNK UNK, CYCLE, ADMINISTERED UNDER THE FOLFIRI CHEMOTHERAPY REGIMEN
     Route: 065
  3. IRINOTECAN [Suspect]
     Active Substance: IRINOTECAN
     Indication: Gastric cancer
     Dosage: UNK UNK, CYCLE, ADMINISTERED UNDER THE FOLFIRI CHEMOTHERAPY REGIMEN
     Route: 065
  4. IRINOTECAN [Suspect]
     Active Substance: IRINOTECAN
     Indication: Epstein-Barr virus infection
  5. LEUCOVORIN [Suspect]
     Active Substance: LEUCOVORIN
     Indication: Gastric cancer
     Dosage: UNK UNK, CYCLE
     Route: 065
  6. LEUCOVORIN [Suspect]
     Active Substance: LEUCOVORIN
     Indication: Epstein-Barr virus infection
     Dosage: UNK UNK, CYCLE,ADMINISTERED UNDER THE FOLFIRI CHEMOTHERAPY REGIMEN
     Route: 065
  7. OXALIPLATIN [Suspect]
     Active Substance: OXALIPLATIN
     Indication: Gastric cancer
     Dosage: UNK, CYCLE
     Route: 065
  8. OXALIPLATIN [Suspect]
     Active Substance: OXALIPLATIN
     Indication: Epstein-Barr virus infection
  9. DOCETAXEL [Suspect]
     Active Substance: DOCETAXEL
     Indication: Gastric cancer
     Dosage: UNK, CYCLE
     Route: 065
  10. DOCETAXEL [Suspect]
     Active Substance: DOCETAXEL
     Indication: Epstein-Barr virus infection
  11. GIMERACIL\OTERACIL\TEGAFUR [Suspect]
     Active Substance: GIMERACIL\OTERACIL\TEGAFUR
     Indication: Gastric cancer
     Dosage: UNK, CYCLE
     Route: 048
  12. GIMERACIL\OTERACIL\TEGAFUR [Suspect]
     Active Substance: GIMERACIL\OTERACIL\TEGAFUR
     Indication: Epstein-Barr virus infection
  13. PACLITAXEL [Suspect]
     Active Substance: PACLITAXEL
     Indication: Gastric cancer
     Dosage: UNK, CYCLE
     Route: 065
  14. PACLITAXEL [Suspect]
     Active Substance: PACLITAXEL
     Indication: Epstein-Barr virus infection
  15. RAMUCIRUMAB [Suspect]
     Active Substance: RAMUCIRUMAB
     Indication: Gastric cancer
     Dosage: UNK, CYCLE
     Route: 065
  16. RAMUCIRUMAB [Suspect]
     Active Substance: RAMUCIRUMAB
     Indication: Epstein-Barr virus infection
  17. LONSURF [Suspect]
     Active Substance: TIPIRACIL HYDROCHLORIDE\TRIFLURIDINE
     Indication: Gastric cancer
     Dosage: UNK, CYCLE
     Route: 065
  18. LONSURF [Suspect]
     Active Substance: TIPIRACIL HYDROCHLORIDE\TRIFLURIDINE
     Indication: Epstein-Barr virus infection

REACTIONS (4)
  - Diarrhoea [Unknown]
  - Asthenia [Unknown]
  - Drug ineffective [Unknown]
  - Disease progression [Unknown]
